FAERS Safety Report 4585957-0 (Version None)
Quarter: 2005Q2

REPORT INFORMATION
  Report Type: 
  Country: None (occurrence: None)
  Receive Date: 20050214
  Receipt Date: 20050208
  Transmission Date: 20051028
  Serious: Yes (Death)
  Sender: FDA-Public Use
  Company Number: J081-002-001861

PATIENT
  Age: 71 Year
  Sex: Male

DRUGS (11)
  1. ARICEPT [Suspect]
     Indication: DEMENTIA ALZHEIMER'S TYPE
     Dosage: SEE IMAGE
     Route: 048
     Dates: start: 20040924, end: 20041021
  2. ARICEPT [Suspect]
     Indication: DEMENTIA ALZHEIMER'S TYPE
     Dosage: SEE IMAGE
     Route: 048
     Dates: start: 20041022, end: 20050109
  3. DOGMATYL (SULPIRIDE) [Suspect]
     Indication: DEPRESSION
     Dosage: 50 MG, ORAL
     Route: 048
  4. LEXOTAN (BROMAZEPAM) [Suspect]
     Indication: DEPRESSION
     Dosage: 2 MG, ORAL
     Route: 048
  5. RITALIN [Concomitant]
     Indication: DEPRESSION
     Dosage: 5 MG, ORAL
     Route: 048
  6. NITRAZEPAM [Suspect]
     Indication: DEPRESSION
     Dosage: 10 MG, ORAL
     Route: 048
  7. BROVARIN (BROMISOVAL) [Suspect]
     Indication: DEPRESSION
     Dosage: 0.5 MG, ORAL
     Route: 048
  8. ISOMYTAL (AMBOBARBITAL) [Suspect]
     Indication: DEPRESSION
     Dosage: 0.1 GBQ, ORAL
     Route: 048
  9. TRAZODONE HCL [Suspect]
     Indication: DEPRESSION
     Dosage: 50 MG, ORAL
     Route: 048
  10. AMOBAN (ZOPICLONE) [Suspect]
     Indication: DEPRESSION
     Dosage: 7.5 MG, ORAL
     Route: 048
  11. TETRAMIDE (MIANSERIN HYDROCHLORIDE) [Suspect]
     Indication: DEPRESSION
     Dosage: 20 MG, ORAL
     Route: 048

REACTIONS (2)
  - CARDIO-RESPIRATORY ARREST [None]
  - MYOCARDIAL INFARCTION [None]
